FAERS Safety Report 4305871-5 (Version None)
Quarter: 2004Q1

REPORT INFORMATION
  Report Type: 
  Country: None (occurrence: None)
  Receive Date: 20040225
  Receipt Date: 20040205
  Transmission Date: 20041129
  Serious: No
  Sender: FDA-Public Use
  Company Number: A06200400033

PATIENT
  Age: 64 Year
  Sex: Female

DRUGS (6)
  1. PLAQUENIL [Suspect]
     Indication: SJOGREN'S SYNDROME
     Dosage: 200 MG OD ORAL
     Route: 048
     Dates: start: 20030630, end: 20030731
  2. NORTRIPTYLINE HCL [Concomitant]
  3. ENAPREN (ENALAPRIL MALEATE) [Concomitant]
  4. DELTACORTENE (PREDNSONE) [Concomitant]
  5. CALCIUM (CALCIUM) [Concomitant]
  6. VITAMIN D (VITAMIN D) [Concomitant]

REACTIONS (2)
  - FACE OEDEMA [None]
  - LARYNGEAL OEDEMA [None]
